FAERS Safety Report 4378029-1 (Version None)
Quarter: 2004Q2

REPORT INFORMATION
  Report Type: 
  Country: None (occurrence: None)
  Receive Date: 20040615
  Receipt Date: 20040615
  Transmission Date: 20050107
  Serious: Yes (Other)
  Sender: FDA-Public Use
  Company Number: None

PATIENT
  Sex: Female

DRUGS (4)
  1. FOSAMAX [Suspect]
     Indication: OSTEOPOROSIS
     Dosage: 1 TABLET ONCE A WEEK
     Dates: start: 20020411, end: 20040418
  2. FUEROSEMIDE [Concomitant]
  3. LOVASTATIN [Concomitant]
  4. POTASSIUM CHLORIDE [Concomitant]

REACTIONS (4)
  - DIFFICULTY IN WALKING [None]
  - PAIN [None]
  - PNEUMONIA [None]
  - POLLAKIURIA [None]
